FAERS Safety Report 9539270 (Version 1)
Quarter: 2013Q2

REPORT INFORMATION
  Report Type: Spontaneous
  Country: US (occurrence: None)
  Receive Date: 20130507
  Receipt Date: 20130507
  Transmission Date: 20140414
  Serious: No
  Sender: FDA-Public Use
  Company Number: PHEH2012US025031

PATIENT
  Age: 72 Year
  Sex: Female

DRUGS (14)
  1. AFINITOR (RAD) [Suspect]
     Route: 048
  2. AROMASIN (EXEMESTANE) [Concomitant]
  3. MELOXICAM (MELOXICAM) [Concomitant]
  4. ZOMETA (ZOLEDRONIC ACID) [Concomitant]
  5. METFORMIN (METFORMIN) [Concomitant]
  6. PROMETH (PROMETHAZINE HYDROCHLORIDE) [Concomitant]
  7. ZOFRAN (ONDANSETRON HYDROCHLORIDE) [Concomitant]
  8. VENTOLIN HFA (SALBUTAMOL SULFATE) [Concomitant]
  9. PRILOSEC [Concomitant]
  10. PULMICORT (BUDESONIDE) [Concomitant]
  11. CALCIUM (CALCIUM) [Concomitant]
  12. STOOL SOFTENER (DOCUSATE SODIUM) [Concomitant]
  13. MUCINEX DM (DEXTROMETHORPHAN HYDROBROMIDE, GUAIFENESIN) [Concomitant]
  14. PROBIOTICS (NO INGREDIENTS/SUBSTANCES) [Concomitant]

REACTIONS (3)
  - Fatigue [None]
  - Platelet count decreased [None]
  - Pyrexia [None]
